FAERS Safety Report 14314665 (Version 1)
Quarter: 2017Q4

REPORT INFORMATION
  Report Type: Spontaneous
  Country: US (occurrence: US)
  Receive Date: 20171221
  Receipt Date: 20171221
  Transmission Date: 20180321
  Serious: No
  Sender: FDA-Public Use
  Company Number: None

PATIENT
  Age: 51 Year
  Sex: Female
  Weight: 66.15 kg

DRUGS (2)
  1. ROLAPITANT [Suspect]
     Active Substance: ROLAPITANT
     Indication: PROPHYLAXIS OF NAUSEA AND VOMITING
     Dosage: 166.5 MG BEFORE CHEMO INTRAVENOUS DRIP
     Route: 041
     Dates: start: 20171212, end: 20171212
  2. DEXAMETHASONE. [Concomitant]
     Active Substance: DEXAMETHASONE

REACTIONS (3)
  - Chest discomfort [None]
  - Flushing [None]
  - Hyperventilation [None]

NARRATIVE: CASE EVENT DATE: 20171212
